FAERS Safety Report 5209396-4 (Version None)
Quarter: 2006Q4

REPORT INFORMATION
  Report Type: 
  Country: None (occurrence: None)
  Receive Date: 20061101
  Receipt Date: 20060812
  Transmission Date: 20070319
  Serious: No
  Sender: FDA-Public Use
  Company Number: 2006PV019366

PATIENT
  Age: 63 Year
  Sex: Female
  Weight: 70.3075 kg

DRUGS (5)
  1. SYMLIN [Suspect]
     Indication: DIABETES MELLITUS NON-INSULIN-DEPENDENT
     Dosage: 45 MCG;TID; SC
     Route: 058
     Dates: start: 20060601
  2. LANTUS [Concomitant]
  3. HUMALOG [Concomitant]
  4. GLIPIZIDE [Concomitant]
  5. GLUCOPHAGE [Concomitant]

REACTIONS (4)
  - BLOOD GLUCOSE FLUCTUATION [None]
  - BLOOD GLUCOSE INCREASED [None]
  - DIZZINESS [None]
  - STRESS [None]
